FAERS Safety Report 5770090-2 (Version None)
Quarter: 2008Q2

REPORT INFORMATION
  Report Type: 
  Country: None (occurrence: None)
  Receive Date: 20080613
  Receipt Date: 20080421
  Transmission Date: 20081010
  Serious: No
  Sender: FDA-Public Use
  Company Number: US-ABBOTT-08P-163-0448262-00

PATIENT
  Sex: Female
  Weight: 71.732 kg

DRUGS (2)
  1. HUMIRA [Suspect]
     Indication: POLYARTHRITIS
     Route: 058
     Dates: start: 20070101
  2. PREDNISONE TAB [Concomitant]
     Indication: POLYARTHRITIS
     Dosage: TAPER DOWN TO 5 MILLIGRAM EVERY DAY
     Route: 048
     Dates: start: 20070101

REACTIONS (2)
  - INJECTION SITE PAIN [None]
  - PROCEDURAL COMPLICATION [None]
